FAERS Safety Report 10266632 (Version 1)
Quarter: 2014Q2

REPORT INFORMATION
  Report Type: Spontaneous
  Country: FR (occurrence: FR)
  Receive Date: 20140629
  Receipt Date: 20140629
  Transmission Date: 20141212
  Serious: Yes (Hospitalization)
  Sender: FDA-Public Use
  Company Number: PHHY2014FR079156

PATIENT
  Age: 78 Year
  Sex: Female

DRUGS (7)
  1. RASILEZ [Suspect]
     Dosage: 300 MG, UNK
     Route: 048
     Dates: start: 20140514, end: 20140521
  2. KARDEGIC [Concomitant]
     Dosage: 75 MG, UNK
     Dates: end: 20140521
  3. ACTIVELLE [Concomitant]
     Dosage: UNK UKN, UNK
  4. AMAREL [Concomitant]
     Dosage: 4 MG, UNK
  5. NOVONORM [Concomitant]
     Dosage: 2 MG, BID
  6. TEMERIT [Concomitant]
     Dosage: 2.5 MG, UNK
  7. TAHOR [Concomitant]
     Dosage: 40 MG, UNK

REACTIONS (1)
  - Thrombocytopenia [Unknown]
